FAERS Safety Report 4986476-X (Version None)
Quarter: 2006Q2

REPORT INFORMATION
  Report Type: 
  Country: None (occurrence: None)
  Receive Date: 20060424
  Receipt Date: 20060410
  Transmission Date: 20061013
  Serious: Yes (Hospitalization)
  Sender: FDA-Public Use
  Company Number: B0420486A

PATIENT
  Age: 20 Year
  Sex: Female

DRUGS (2)
  1. IMITREX [Suspect]
     Indication: MIGRAINE
     Dosage: 50 MG / AS REQUIRED /
  2. TOPIRAMATE [Concomitant]

REACTIONS (8)
  - ABDOMINAL PAIN [None]
  - BLOOD AMYLASE INCREASED [None]
  - INTESTINAL ISCHAEMIA [None]
  - LEUKOCYTOSIS [None]
  - NAUSEA [None]
  - OCCULT BLOOD POSITIVE [None]
  - VOMITING [None]
  - WEIGHT DECREASED [None]
